FAERS Safety Report 7307589-3 (Version None)
Quarter: 2011Q1

REPORT INFORMATION
  Report Type: 
  Country: None (occurrence: None)
  Receive Date: 20110218
  Receipt Date: 20110218
  Transmission Date: 20110831
  Serious: Yes (Hospitalization)
  Sender: FDA-Public Use
  Company Number: None

PATIENT
  Age: 58 Year
  Sex: Female
  Weight: 90.7194 kg

DRUGS (1)
  1. TRIAD STERILE ALCOHOL PREP PAD TRIAD GRP, INC [Suspect]
     Indication: MULTIPLE SCLEROSIS
     Dosage: 2 PADS EVERY 48 HOURS SQ
     Route: 058
     Dates: start: 20101201, end: 20110108

REACTIONS (1)
  - INJECTION SITE PAIN [None]
